FAERS Safety Report 5193409-2 (Version None)
Quarter: 2006Q4

REPORT INFORMATION
  Report Type: 
  Country: None (occurrence: None)
  Receive Date: 20061228
  Receipt Date: 20060308
  Transmission Date: 20070319
  Serious: No
  Sender: FDA-Public Use
  Company Number: US-GLAXOSMITHKLINE-A0596750A

PATIENT
  Age: 29 Year
  Sex: Male

DRUGS (4)
  1. TRIZIVIR [Suspect]
     Dosage: 1TAB UNKNOWN
     Dates: start: 20060101, end: 20060224
  2. KALETRA [Concomitant]
  3. AZITHROMYCIN [Concomitant]
  4. HYDROCODONE BITARTRATE [Concomitant]

REACTIONS (3)
  - FATIGUE [None]
  - HYPERSENSITIVITY [None]
  - NAUSEA [None]
